FAERS Safety Report 6063134-4 (Version None)
Quarter: 2009Q1

REPORT INFORMATION
  Report Type: 
  Country: None (occurrence: None)
  Receive Date: 20090129
  Receipt Date: 20090120
  Transmission Date: 20090719
  Serious: Yes (Life-Threatening)
  Sender: FDA-Public Use
  Company Number: B0441145A

PATIENT
  Age: 27 Year
  Sex: Female
  Weight: 51.8915 kg

DRUGS (8)
  1. PAXIL [Suspect]
     Indication: PANIC DISORDER
     Dates: start: 20060606, end: 20060622
  2. ALPRAZOLAM [Suspect]
     Indication: PANIC DISORDER
     Dates: start: 20060101, end: 20060622
  3. FLUNITRAZEPAM TABLET (FLUNITRAZEPAM) [Suspect]
     Indication: PANIC DISORDER
     Dosage: ORAL
     Route: 048
     Dates: start: 20060601, end: 20060622
  4. ETHYL LOFLAZEPATE (FORMULATION UNKNOWN) (ETHYL LOFLAZEPATE) [Suspect]
     Indication: PANIC DISORDER
     Dosage: ORAL
     Route: 048
     Dates: end: 20060622
  5. QUETIAPINE FUMARATE [Suspect]
     Indication: PANIC DISORDER
     Dosage: THREE TIMES PER DAY / ORAL
     Route: 048
     Dates: start: 20060101, end: 20060622
  6. VEGETAMIN A TABLET (VEGETAMIN A) [Suspect]
     Indication: PANIC DISORDER
     Dosage: PER DAY / ORAL
     Route: 048
     Dates: start: 20060519, end: 20060622
  7. UNKNOWN (FORMULATION UNKNOWN) [Suspect]
     Indication: PANIC DISORDER
  8. BETAMETHASONE NA PO4 [Concomitant]

REACTIONS (6)
  - DRUG EXPOSURE DURING PREGNANCY [None]
  - DRUG RASH WITH EOSINOPHILIA AND SYSTEMIC SYMPTOMS [None]
  - HEPATIC FUNCTION ABNORMAL [None]
  - LYMPHOCYTE STIMULATION TEST POSITIVE [None]
  - PREGNANCY [None]
  - TOXIC EPIDERMAL NECROLYSIS [None]
